FAERS Safety Report 20901612 (Version 5)
Quarter: 2025Q3

REPORT INFORMATION
  Report Type: Spontaneous
  Country: US (occurrence: US)
  Receive Date: 20220601
  Receipt Date: 20250812
  Transmission Date: 20251020
  Serious: Yes (Other)
  Sender: PFIZER
  Company Number: US-PFIZER INC-202200766110

PATIENT
  Age: 74 Year
  Sex: Female
  Weight: 68.04 kg

DRUGS (5)
  1. NALBUPHINE HYDROCHLORIDE [Suspect]
     Active Substance: NALBUPHINE HYDROCHLORIDE
     Indication: Fibromyalgia
     Dosage: 1 ML, 4X/DAY
  2. NALBUPHINE HYDROCHLORIDE [Suspect]
     Active Substance: NALBUPHINE HYDROCHLORIDE
     Indication: Nerve injury
  3. NALBUPHINE HYDROCHLORIDE [Suspect]
     Active Substance: NALBUPHINE HYDROCHLORIDE
     Indication: Pain
  4. LOSARTAN [Concomitant]
     Active Substance: LOSARTAN
     Indication: Hypertension
     Dosage: I TAKE ^50-2.5^ MILLIGRAM ONE A DAY
  5. LEVOTHYROXINE SODIUM [Concomitant]
     Active Substance: LEVOTHYROXINE SODIUM
     Dosage: 75 MICROGRAMS, ONCE DAY

REACTIONS (5)
  - Rotator cuff syndrome [Unknown]
  - Osteoporosis [Unknown]
  - Arthritis [Unknown]
  - Scoliosis [Unknown]
  - Lung disorder [Unknown]
